FAERS Safety Report 10078677 (Version 4)
Quarter: 2014Q2

REPORT INFORMATION
  Report Type: Spontaneous
  Country: JP (occurrence: JP)
  Receive Date: 20140415
  Receipt Date: 20140605
  Transmission Date: 20141212
  Serious: Yes (Other)
  Sender: FDA-Public Use
  Company Number: JP-PFIZER INC-2014104296

PATIENT
  Age: 3 Year
  Sex: Male
  Weight: 12 kg

DRUGS (1)
  1. FOSPHENYTOIN SODIUM [Suspect]
     Dosage: 22.5 MG/KG (270 MG)
     Dates: start: 20140401, end: 20140401

REACTIONS (1)
  - Blood creatine phosphokinase increased [Recovering/Resolving]
